FAERS Safety Report 11242930 (Version 1)
Quarter: 2015Q3

REPORT INFORMATION
  Report Type: Spontaneous
  Country: GB (occurrence: GB)
  Receive Date: 20150707
  Receipt Date: 20150707
  Transmission Date: 20151125
  Serious: Yes (Other)
  Sender: FDA-Public Use
  Company Number: GB-BAYER-2015-364182

PATIENT
  Age: 63 Year
  Sex: Male
  Weight: 98.42 kg

DRUGS (7)
  1. CIPROFLOXACIN MONOHYDROCHLORIDE [Suspect]
     Active Substance: CIPROFLOXACIN
     Indication: PROSTATITIS
     Dosage: 250 MG, QID
     Route: 048
     Dates: end: 20150601
  2. CIPROFLOXACIN MONOHYDROCHLORIDE [Suspect]
     Active Substance: CIPROFLOXACIN
     Indication: PROSTATITIS
     Dosage: 500 MG, BID
     Route: 048
     Dates: start: 20150501
  3. SIMVASTATIN. [Concomitant]
     Active Substance: SIMVASTATIN
  4. LISINOPRIL. [Concomitant]
     Active Substance: LISINOPRIL
  5. CITALOPRAM [Concomitant]
     Active Substance: CITALOPRAM HYDROBROMIDE
  6. FELODIPINE. [Concomitant]
     Active Substance: FELODIPINE
  7. BENDROFLUAZIDE [Concomitant]
     Active Substance: BENDROFLUMETHIAZIDE

REACTIONS (10)
  - Blood caffeine increased [Recovered/Resolved]
  - Insomnia [Recovered/Resolved]
  - Panic attack [Recovered/Resolved with Sequelae]
  - Drug interaction [Unknown]
  - Hypertension [Not Recovered/Not Resolved]
  - Agitation [Unknown]
  - Anxiety [Recovered/Resolved with Sequelae]
  - Malaise [Unknown]
  - Heart rate increased [Unknown]
  - Palpitations [Recovered/Resolved with Sequelae]

NARRATIVE: CASE EVENT DATE: 20150501
